FAERS Safety Report 9636004 (Version 2)
Quarter: 2014Q2

REPORT INFORMATION
  Report Type: Spontaneous
  Country: US (occurrence: US)
  Receive Date: 20131021
  Receipt Date: 20140530
  Transmission Date: 20141212
  Serious: No
  Sender: FDA-Public Use
  Company Number: US-009507513-1310USA008784

PATIENT
  Sex: Female
  Weight: 87.98 kg

DRUGS (7)
  1. MIRALAX [Suspect]
     Indication: PRODUCT USED FOR UNKNOWN INDICATION
     Dosage: 17 G, QD
     Route: 048
  2. MIRALAX [Suspect]
     Dosage: UNK UNK, BID
     Route: 048
  3. METOPROLOL [Concomitant]
     Indication: BLOOD PRESSURE
     Dosage: UNK, UNKNOWN
  4. GLIPIZIDE [Concomitant]
     Indication: DIABETES MELLITUS
     Dosage: UNK, UNKNOWN
  5. LIPITOR [Concomitant]
     Indication: BLOOD CHOLESTEROL
     Dosage: UNK, UNKNOWN
  6. DOXEPIN HYDROCHLORIDE [Concomitant]
     Indication: DEPRESSION
     Dosage: UNK, UNKNOWN
  7. METFORMIN [Concomitant]
     Indication: DIABETES MELLITUS
     Dosage: UNK, UNKNOWN

REACTIONS (2)
  - Inappropriate schedule of drug administration [Unknown]
  - Incorrect drug administration duration [Unknown]
